FAERS Safety Report 4930216-7 (Version None)
Quarter: 2006Q1

REPORT INFORMATION
  Report Type: 
  Country: None (occurrence: None)
  Receive Date: 20060302
  Receipt Date: 20060124
  Transmission Date: 20060701
  Serious: Yes (Other)
  Sender: FDA-Public Use
  Company Number: JP-ROCHE-433910

PATIENT
  Sex: Female
  Weight: 15 kg

DRUGS (3)
  1. TAMIFLU [Suspect]
     Indication: INFLUENZA
     Route: 048
     Dates: start: 20060116, end: 20060116
  2. SOLDEM [Concomitant]
     Route: 042
     Dates: start: 20060116, end: 20060120
  3. MEROPEN [Concomitant]
     Route: 042
     Dates: start: 20060116, end: 20060121

REACTIONS (3)
  - ABNORMAL BEHAVIOUR [None]
  - DELIRIUM [None]
  - UNRESPONSIVE TO VERBAL STIMULI [None]
